FAERS Safety Report 26073950 (Version 1)
Quarter: 2025Q4

REPORT INFORMATION
  Report Type: Report from Study
  Country: EU (occurrence: EU)
  Receive Date: 20251121
  Receipt Date: 20251121
  Transmission Date: 20260117
  Serious: Yes (Other)
  Sender: ROCHE
  Company Number: EU-ROCHE-10000433409

PATIENT

DRUGS (44)
  1. RITUXIMAB [Suspect]
     Active Substance: RITUXIMAB
     Indication: Hepatic function abnormal
     Route: 065
  2. RITUXIMAB [Suspect]
     Active Substance: RITUXIMAB
     Indication: Renal impairment
  3. TECENTRIQ [Suspect]
     Active Substance: ATEZOLIZUMAB
     Indication: Hepatic function abnormal
     Route: 065
  4. TECENTRIQ [Suspect]
     Active Substance: ATEZOLIZUMAB
     Indication: Renal impairment
  5. AVASTIN [Suspect]
     Active Substance: BEVACIZUMAB
     Indication: Hepatic function abnormal
     Route: 065
  6. AVASTIN [Suspect]
     Active Substance: BEVACIZUMAB
     Indication: Renal impairment
  7. XELODA [Suspect]
     Active Substance: CAPECITABINE
     Indication: Hepatic function abnormal
     Route: 065
  8. XELODA [Suspect]
     Active Substance: CAPECITABINE
     Indication: Renal impairment
  9. HERCEPTIN [Suspect]
     Active Substance: TRASTUZUMAB
     Indication: Hepatic function abnormal
     Route: 065
  10. HERCEPTIN [Suspect]
     Active Substance: TRASTUZUMAB
     Indication: Renal impairment
  11. PERJETA [Suspect]
     Active Substance: PERTUZUMAB
     Indication: Hepatic function abnormal
     Route: 065
  12. PERJETA [Suspect]
     Active Substance: PERTUZUMAB
     Indication: Renal impairment
  13. METHOTREXATE [Suspect]
     Active Substance: METHOTREXATE
     Indication: Hepatic function abnormal
     Route: 065
  14. METHOTREXATE [Suspect]
     Active Substance: METHOTREXATE
     Indication: Renal impairment
  15. DOXORUBICIN [Suspect]
     Active Substance: DOXORUBICIN
     Indication: Hepatic function abnormal
     Route: 065
  16. DOXORUBICIN [Suspect]
     Active Substance: DOXORUBICIN
     Indication: Renal impairment
  17. CYCLOPHOSPHAMIDE [Suspect]
     Active Substance: CYCLOPHOSPHAMIDE
     Indication: Hepatic function abnormal
     Route: 065
  18. CYCLOPHOSPHAMIDE [Suspect]
     Active Substance: CYCLOPHOSPHAMIDE
     Indication: Renal impairment
  19. VINCRISTINE [Suspect]
     Active Substance: VINCRISTINE
     Indication: Hepatic function abnormal
     Route: 065
  20. VINCRISTINE [Suspect]
     Active Substance: VINCRISTINE
     Indication: Renal impairment
  21. OXALIPLATIN [Suspect]
     Active Substance: OXALIPLATIN
     Indication: Hepatic function abnormal
     Route: 065
  22. OXALIPLATIN [Suspect]
     Active Substance: OXALIPLATIN
     Indication: Renal impairment
  23. FLUOROURACIL [Suspect]
     Active Substance: FLUOROURACIL
     Indication: Hepatic function abnormal
     Route: 065
  24. FLUOROURACIL [Suspect]
     Active Substance: FLUOROURACIL
     Indication: Renal impairment
  25. IRINOTECAN [Suspect]
     Active Substance: IRINOTECAN
     Indication: Hepatic function abnormal
     Route: 065
  26. IRINOTECAN [Suspect]
     Active Substance: IRINOTECAN
     Indication: Renal impairment
  27. PACLITAXEL [Suspect]
     Active Substance: PACLITAXEL
     Indication: Hepatic function abnormal
     Route: 065
  28. PACLITAXEL [Suspect]
     Active Substance: PACLITAXEL
     Indication: Renal impairment
  29. CARBOPLATIN [Suspect]
     Active Substance: CARBOPLATIN
     Indication: Hepatic function abnormal
     Route: 065
  30. CARBOPLATIN [Suspect]
     Active Substance: CARBOPLATIN
     Indication: Renal impairment
  31. DOCETAXEL [Suspect]
     Active Substance: DOCETAXEL
     Indication: Hepatic function abnormal
     Route: 065
  32. DOCETAXEL [Suspect]
     Active Substance: DOCETAXEL
     Indication: Renal impairment
  33. CISPLATIN [Suspect]
     Active Substance: CISPLATIN
     Indication: Hepatic function abnormal
     Route: 065
  34. CISPLATIN [Suspect]
     Active Substance: CISPLATIN
     Indication: Renal impairment
  35. CYTARABINE [Suspect]
     Active Substance: CYTARABINE
     Indication: Hepatic function abnormal
     Route: 065
  36. CYTARABINE [Suspect]
     Active Substance: CYTARABINE
     Indication: Renal impairment
  37. IFOSFAMIDE [Suspect]
     Active Substance: IFOSFAMIDE
     Indication: Hepatic function abnormal
     Route: 065
  38. IFOSFAMIDE [Suspect]
     Active Substance: IFOSFAMIDE
     Indication: Renal impairment
  39. FLUDARABINE [Suspect]
     Active Substance: FLUDARABINE PHOSPHATE
     Indication: Hepatic function abnormal
     Route: 065
  40. FLUDARABINE [Suspect]
     Active Substance: FLUDARABINE PHOSPHATE
     Indication: Renal impairment
  41. BENDAMUSTINE [Suspect]
     Active Substance: BENDAMUSTINE
     Indication: Hepatic function abnormal
     Route: 065
  42. BENDAMUSTINE [Suspect]
     Active Substance: BENDAMUSTINE
     Indication: Renal impairment
  43. ETOPOSIDE [Suspect]
     Active Substance: ETOPOSIDE
     Indication: Hepatic function abnormal
     Route: 065
  44. ETOPOSIDE [Suspect]
     Active Substance: ETOPOSIDE
     Indication: Renal impairment

REACTIONS (4)
  - Neutropenia [Unknown]
  - Thrombocytopenia [Unknown]
  - Anaemia [Unknown]
  - Leukopenia [Unknown]
